FAERS Safety Report 23400783 (Version 3)
Quarter: 2024Q1

REPORT INFORMATION
  Report Type: Spontaneous
  Country: JP (occurrence: JP)
  Receive Date: 20240115
  Receipt Date: 20240308
  Transmission Date: 20240409
  Serious: Yes (Other)
  Sender: FDA-Public Use
  Company Number: JP-NBI-BJ202400637

PATIENT
  Age: 92 Year
  Sex: Male

DRUGS (3)
  1. LINAGLIPTIN [Suspect]
     Active Substance: LINAGLIPTIN
     Indication: Diabetes mellitus
     Route: 048
  2. CORTICOSTEROID NOS [Concomitant]
     Active Substance: CORTICOSTEROID NOS
     Indication: Product used for unknown indication
     Route: 065
  3. SULFONYLUREA, DERIVATIVES AND PREPARATIONS [Concomitant]
     Indication: Product used for unknown indication
     Route: 048

REACTIONS (1)
  - Pemphigus [Recovering/Resolving]
